FAERS Safety Report 17848830 (Version 1)
Quarter: 2020Q2

REPORT INFORMATION
  Report Type: Spontaneous
  Country: US (occurrence: US)
  Receive Date: 20200602
  Receipt Date: 20200602
  Transmission Date: 20200714
  Serious: Yes (Other)
  Sender: FDA-Public Use
  Company Number: US-RECKITT BENCKISER HEALTHCARE INT LIMITED-RB-83518-2020

PATIENT
  Age: 74 Year
  Sex: Female

DRUGS (1)
  1. MUCINEX FAST-MAX COLD, FLU AND SORE THROAT [Suspect]
     Active Substance: ACETAMINOPHEN\DEXTROMETHORPHAN HYDROBROMIDE\GUAIFENESIN\PHENYLEPHRINE HYDROCHLORIDE
     Indication: PRODUCT USED FOR UNKNOWN INDICATION
     Dosage: 30 MILLILITER, BID
     Route: 048
     Dates: start: 20200204

REACTIONS (4)
  - Dizziness [Recovered/Resolved]
  - Expired product administered [Recovered/Resolved]
  - Wrong technique in product usage process [Recovered/Resolved]
  - Overdose [Recovered/Resolved]

NARRATIVE: CASE EVENT DATE: 20200204
